FAERS Safety Report 5114939-5 (Version None)
Quarter: 2006Q3

REPORT INFORMATION
  Report Type: 
  Country: None (occurrence: None)
  Receive Date: 20060925
  Receipt Date: 20060925
  Transmission Date: 20061208
  Serious: Yes (Other)
  Sender: FDA-Public Use
  Company Number: None

PATIENT
  Sex: Female
  Weight: 55.7924 kg

DRUGS (5)
  1. FOSAMAX [Suspect]
     Indication: OSTEOPOROSIS
     Dosage: 70 MG   PER WEEK   PO
     Route: 048
     Dates: start: 20040909, end: 20050809
  2. BONIVA [Suspect]
     Indication: OSTEOPOROSIS
     Dosage: 150 MG  PER MONTH  PO
     Route: 048
     Dates: start: 20050909, end: 20060705
  3. HORMONE REPLACEMENT TREATMENT -BIOIDENTICALS- [Concomitant]
  4. PERNA PLUS [Concomitant]
  5. OSTEOPRIME FORTE [Concomitant]

REACTIONS (17)
  - ABDOMINAL DISTENSION [None]
  - ARTHRALGIA [None]
  - BURNING SENSATION [None]
  - DYSPEPSIA [None]
  - GASTROOESOPHAGEAL REFLUX DISEASE [None]
  - GLOSSODYNIA [None]
  - HEADACHE [None]
  - HERPES SIMPLEX [None]
  - HERPES ZOSTER [None]
  - ORAL DISCOMFORT [None]
  - PHARYNGEAL OEDEMA [None]
  - PRODUCTIVE COUGH [None]
  - SENSATION OF HEAVINESS [None]
  - SWELLING [None]
  - THROAT IRRITATION [None]
  - VAGINAL INFECTION [None]
  - WEIGHT INCREASED [None]
